FAERS Safety Report 12551900 (Version 1)
Quarter: 2016Q3

REPORT INFORMATION
  Report Type: Spontaneous
  Country: US (occurrence: None)
  Receive Date: 20160712
  Receipt Date: 20160712
  Transmission Date: 20161109
  Serious: Yes (Hospitalization, Other)
  Sender: FDA-Public Use
  Company Number: None

PATIENT
  Age: 67 Year
  Sex: Female
  Weight: 92.99 kg

DRUGS (17)
  1. COQ10 [Concomitant]
     Active Substance: UBIDECARENONE
  2. CELERY SEED [Concomitant]
     Active Substance: CELERY SEED
  3. BIOTIN [Concomitant]
     Active Substance: BIOTIN
  4. ASPIRIN. [Concomitant]
     Active Substance: ASPIRIN
  5. POTA CHLORIDE [Concomitant]
  6. TUMERIC [Concomitant]
     Active Substance: TURMERIC
  7. ESTROVAN [Concomitant]
  8. PRAVASTATIN. [Suspect]
     Active Substance: PRAVASTATIN
     Indication: BLOOD CHOLESTEROL INCREASED
     Route: 048
     Dates: start: 20110601, end: 20160708
  9. CHLORITHALIDONE [Concomitant]
  10. GLUCOSAMINE CHONDROITIN [Concomitant]
     Active Substance: CHONDROITIN SULFATE (BOVINE)\GLUCOSAMINE HYDROCHLORIDE
  11. MAGNESIUM [Concomitant]
     Active Substance: MAGNESIUM
  12. MULTIVITAMIN [Concomitant]
     Active Substance: VITAMINS
  13. LIPITOR [Suspect]
     Active Substance: ATORVASTATIN CALCIUM
     Indication: BLOOD CHOLESTEROL INCREASED
     Route: 048
  14. AMLODIPINE BESYLATE. [Concomitant]
     Active Substance: AMLODIPINE BESYLATE
  15. Z-BEC B-COMPLEX [Concomitant]
  16. SUPPER B-COMPLEX [Concomitant]
  17. ONDANSETRON [Concomitant]
     Active Substance: ONDANSETRON

REACTIONS (6)
  - Hyperhidrosis [None]
  - Syncope [None]
  - Gluten sensitivity [None]
  - Vomiting [None]
  - Diarrhoea [None]
  - Heart rate increased [None]

NARRATIVE: CASE EVENT DATE: 20110601
